FAERS Safety Report 7180899 (Version 3)
Quarter: 2013Q1

REPORT INFORMATION
  Report Type: Spontaneous
  Country: US (occurrence: US)
  Receive Date: 20091119
  Receipt Date: 20130114
  Transmission Date: 20140127
  Serious: Yes (Hospitalization)
  Sender: FDA-Public Use
  Company Number: US-BIOGENIDEC-2009BI036894

PATIENT
  Age: 59 Year
  Sex: Female

DRUGS (9)
  1. AVONEX [Suspect]
     Indication: MULTIPLE SCLEROSIS
     Route: 030
     Dates: start: 20030707, end: 200308
  2. AVONEX [Suspect]
     Indication: MULTIPLE SCLEROSIS
     Route: 030
     Dates: start: 200308
  3. AVONEX [Suspect]
     Indication: MULTIPLE SCLEROSIS
     Route: 030
     Dates: start: 200308
  4. BACLOFEN [Concomitant]
  5. IBUPROFEN [Concomitant]
  6. BUPROPION [Concomitant]
  7. TRAZODONE [Concomitant]
     Indication: DEPRESSION
  8. TRAZODONE [Concomitant]
     Indication: INSOMNIA
  9. WELLBUTRIN [Concomitant]
     Indication: DEPRESSION

REACTIONS (16)
  - Transient ischaemic attack [Recovered/Resolved]
  - Stress [Unknown]
  - Multiple sclerosis relapse [Recovered/Resolved]
  - Anxiety [Recovered/Resolved]
  - Anxiety disorder [Unknown]
  - Blood cholesterol increased [Unknown]
  - Loss of control of legs [Recovered/Resolved]
  - Tremor [Recovered/Resolved]
  - Cerebrovascular accident [Recovered/Resolved]
  - Pain in extremity [Recovered/Resolved]
  - Paraesthesia [Recovered/Resolved]
  - Burnout syndrome [Not Recovered/Not Resolved]
  - Panic attack [Recovered/Resolved]
  - Eye disorder [Recovered/Resolved]
  - Disturbance in attention [Not Recovered/Not Resolved]
  - Fatigue [Not Recovered/Not Resolved]
